FAERS Safety Report 9674046 (Version 1)
Quarter: 2013Q4

REPORT INFORMATION
  Report Type: Spontaneous
  Country: US (occurrence: US)
  Receive Date: 20131106
  Receipt Date: 20131106
  Transmission Date: 20140711
  Serious: No
  Sender: FDA-Public Use
  Company Number: US-AMGEN-USASP2013076077

PATIENT
  Age: 58 Year
  Sex: Male

DRUGS (6)
  1. ENBREL [Suspect]
     Indication: PSORIATIC ARTHROPATHY
     Dosage: 50 MG, QWK
     Route: 065
     Dates: start: 201308
  2. ENBREL [Suspect]
     Indication: PSORIASIS
  3. GLIPIZIDE [Concomitant]
     Dosage: UNK
  4. XANAX [Concomitant]
     Dosage: 2 MG, QID
     Route: 065
  5. EDARBYCLOR [Concomitant]
     Dosage: 40MG/25MG
  6. TRAMADOL [Concomitant]
     Dosage: UNK

REACTIONS (3)
  - Drug screen positive [Unknown]
  - Dysgeusia [Unknown]
  - Gastroenteritis [Recovered/Resolved]
